FAERS Safety Report 8015837-X (Version None)
Quarter: 2011Q4

REPORT INFORMATION
  Report Type: 
  Country: None (occurrence: None)
  Receive Date: 20111230
  Receipt Date: 20111226
  Transmission Date: 20120403
  Serious: Yes (Other)
  Sender: FDA-Public Use
  Company Number: GB-ROCHE-1025982

PATIENT
  Age: 47 Year
  Sex: Male

DRUGS (2)
  1. CYCLOPHOSPHAMIDE [Concomitant]
  2. MABTHERA [Suspect]
     Indication: DIFFUSE VASCULITIS
     Route: 065

REACTIONS (1)
  - SQUAMOUS CELL CARCINOMA [None]
